FAERS Safety Report 12990262 (Version 1)
Quarter: 2016Q4

REPORT INFORMATION
  Report Type: Spontaneous
  Country: SV (occurrence: SV)
  Receive Date: 20161201
  Receipt Date: 20161201
  Transmission Date: 20170207
  Serious: Yes (Hospitalization, Other)
  Sender: FDA-Public Use
  Company Number: SV-GLAXOSMITHKLINE-SV2016GSK147084

PATIENT
  Age: 8 Year
  Sex: Male

DRUGS (1)
  1. SERETIDE [Suspect]
     Active Substance: FLUTICASONE PROPIONATE\SALMETEROL XINAFOATE
     Indication: PROPHYLAXIS
     Dosage: UNK UNK, EVERY 4 HOURS
     Route: 055

REACTIONS (5)
  - Bronchospasm [Not Recovered/Not Resolved]
  - Off label use [Unknown]
  - Cough [Unknown]
  - Drug administered to patient of inappropriate age [Unknown]
  - Asthmatic crisis [Unknown]
